FAERS Safety Report 25740824 (Version 1)
Quarter: 2025Q3

REPORT INFORMATION
  Report Type: Spontaneous
  Country: US (occurrence: US)
  Receive Date: 20250829
  Receipt Date: 20250829
  Transmission Date: 20251021
  Serious: No
  Sender: SANOFI AVENTIS
  Company Number: US-SA-2025SA257630

PATIENT

DRUGS (3)
  1. DUPIXENT [Suspect]
     Active Substance: DUPILUMAB
     Indication: Dermatosis
  2. DUPIXENT [Suspect]
     Active Substance: DUPILUMAB
     Indication: Nodule
  3. DUPIXENT [Suspect]
     Active Substance: DUPILUMAB
     Indication: Papule

REACTIONS (2)
  - Product prescribing issue [Unknown]
  - Drug effective for unapproved indication [Unknown]
